FAERS Safety Report 6122149-8 (Version None)
Quarter: 2009Q1

REPORT INFORMATION
  Report Type: 
  Country: None (occurrence: None)
  Receive Date: 20090318
  Receipt Date: 20090306
  Transmission Date: 20090719
  Serious: Yes (Hospitalization)
  Sender: FDA-Public Use
  Company Number: PHHY2009GB02018

PATIENT
  Sex: Female

DRUGS (5)
  1. CLOZARIL [Suspect]
     Indication: SCHIZOPHRENIA
     Dosage: 600 MG DAILY
     Route: 048
     Dates: start: 20080811
  2. CLOZARIL [Suspect]
     Dosage: UP TO 30X100TABLETS
  3. SCOPODERM [Concomitant]
     Dosage: 1MG EVERY 3 DAYS
     Dates: start: 20080811, end: 20090114
  4. ASPIRIN [Concomitant]
     Indication: ANTIPLATELET THERAPY
     Dosage: 75 MG DAILY
     Dates: start: 20080811, end: 20090114
  5. ACETAMINOPHEN W/ CODEINE [Concomitant]
     Indication: PAIN
     Dosage: UNK
     Dates: start: 20080811, end: 20090114

REACTIONS (9)
  - ACCIDENTAL OVERDOSE [None]
  - CONFUSIONAL STATE [None]
  - CONVULSION [None]
  - DEHYDRATION [None]
  - DELIRIUM [None]
  - DIARRHOEA [None]
  - MALAISE [None]
  - VIRAL INFECTION [None]
  - VOMITING [None]
